FAERS Safety Report 24043252 (Version 1)
Quarter: 2024Q3

REPORT INFORMATION
  Report Type: Spontaneous
  Country: JP (occurrence: JP)
  Receive Date: 20240702
  Receipt Date: 20240702
  Transmission Date: 20241016
  Serious: Yes (Other)
  Sender: PFIZER
  Company Number: JP-PFIZER INC-202400203094

PATIENT
  Age: 47 Year
  Sex: Female

DRUGS (1)
  1. AZITHROMYCIN DIHYDRATE [Suspect]
     Active Substance: AZITHROMYCIN DIHYDRATE
     Indication: Chlamydial cervicitis
     Dosage: 1000 MG, SINGLE
     Route: 048
     Dates: start: 20240627, end: 20240627

REACTIONS (3)
  - Drug ineffective [Unknown]
  - Pelvic abscess [Unknown]
  - Inflammation [Unknown]

NARRATIVE: CASE EVENT DATE: 20240628
